FAERS Safety Report 9111425 (Version 1)
Quarter: 2013Q1

REPORT INFORMATION
  Report Type: Spontaneous
  Country: US (occurrence: US)
  Receive Date: 20130219
  Receipt Date: 20130219
  Transmission Date: 20140127
  Serious: No
  Sender: FDA-Public Use
  Company Number: US-BRISTOL-MYERS SQUIBB COMPANY-16386393

PATIENT
  Age: 16 Year
  Sex: Female

DRUGS (1)
  1. ORENCIA [Suspect]
     Indication: RHEUMATOID ARTHRITIS
     Dosage: LAST INJ:04FEB2012
     Route: 058
     Dates: start: 20120127, end: 20120301

REACTIONS (4)
  - Rheumatoid arthritis [Unknown]
  - Asthma [Unknown]
  - Hypersensitivity [Recovered/Resolved with Sequelae]
  - Somnolence [Unknown]
